FAERS Safety Report 14441494 (Version 12)
Quarter: 2018Q3

REPORT INFORMATION
  Report Type: Spontaneous
  Country: CA (occurrence: CA)
  Receive Date: 20180125
  Receipt Date: 20180919
  Transmission Date: 20181010
  Serious: Yes (Hospitalization, Other)
  Sender: FDA-Public Use
  Company Number: CA-PFIZER INC-2018025987

PATIENT
  Age: 64 Year
  Sex: Male

DRUGS (6)
  1. PREDNISONE. [Concomitant]
     Active Substance: PREDNISONE
     Dosage: 50 MG, DAILY AND TAPERING DOSE
     Dates: start: 201710
  2. INFLECTRA [Suspect]
     Active Substance: INFLIXIMAB-DYYB
     Dosage: 500 MG, EVERY 0, 2, 6 WEEKS THEN EVERY 8 WEEKS
     Route: 042
     Dates: start: 20180131
  3. INFLECTRA [Suspect]
     Active Substance: INFLIXIMAB-DYYB
     Indication: CROHN^S DISEASE
     Dosage: 500 MG, EVERY 0, 2, 6 WEEKS THEN EVERY 8 WEEKS
     Route: 042
     Dates: start: 20180117
  4. HYDROCORTISONE SODIUM SUCCINATE [Suspect]
     Active Substance: HYDROCORTISONE SODIUM SUCCINATE
     Indication: PREMEDICATION
     Dosage: 100 MG, UNK
     Route: 042
     Dates: start: 20180117
  5. SALBUTAMOL [Concomitant]
     Active Substance: ALBUTEROL
     Dosage: UNK
  6. INFLECTRA [Suspect]
     Active Substance: INFLIXIMAB-DYYB
     Dosage: 500 MG, EVERY 0, 2, 6 WEEKS THEN EVERY 8 WEEKS
     Route: 042
     Dates: start: 20180228, end: 20180228

REACTIONS (24)
  - Cardiac failure congestive [Unknown]
  - Heart rate decreased [Recovered/Resolved]
  - Heart rate irregular [Unknown]
  - Oedema peripheral [Recovering/Resolving]
  - Pulmonary oedema [Recovered/Resolved]
  - Ventricular extrasystoles [Unknown]
  - Haematochezia [Unknown]
  - Abdominal discomfort [Recovered/Resolved]
  - Arthralgia [Unknown]
  - Condition aggravated [Unknown]
  - Systolic dysfunction [Unknown]
  - Electrocardiogram abnormal [Unknown]
  - Heart rate decreased [Unknown]
  - Left ventricular hypertrophy [Unknown]
  - Nausea [Unknown]
  - Testicular oedema [Not Recovered/Not Resolved]
  - Insomnia [Recovered/Resolved]
  - Left ventricular failure [Unknown]
  - Vein wall hypertrophy [Unknown]
  - Abdominal pain [Recovering/Resolving]
  - Flatulence [Unknown]
  - Dyspnoea [Recovering/Resolving]
  - Generalised oedema [Recovering/Resolving]
  - Influenza like illness [Recovering/Resolving]

NARRATIVE: CASE EVENT DATE: 201801
